FAERS Safety Report 7064596-6 (Version None)
Quarter: 2010Q4

REPORT INFORMATION
  Report Type: 
  Country: None (occurrence: None)
  Receive Date: 20101022
  Receipt Date: 20101022
  Transmission Date: 20110411
  Serious: No
  Sender: FDA-Public Use
  Company Number: None

PATIENT
  Age: 81 Year
  Sex: Female

DRUGS (1)
  1. CARVEDILOL 25 MG 1 BID [Suspect]

REACTIONS (2)
  - NAUSEA [None]
  - NERVOUSNESS [None]
